FAERS Safety Report 12796298 (Version 1)
Quarter: 2016Q3

REPORT INFORMATION
  Report Type: Spontaneous
  Country: FR (occurrence: FR)
  Receive Date: 20160929
  Receipt Date: 20160929
  Transmission Date: 20161109
  Serious: Yes (Death, Hospitalization)
  Sender: FDA-Public Use
  Company Number: FR-JNJFOC-20160924823

PATIENT
  Age: 34 Year
  Sex: Male

DRUGS (15)
  1. TRAMADOL HYDROCHLORIDE. [Suspect]
     Active Substance: TRAMADOL HYDROCHLORIDE
     Indication: PRODUCT USED FOR UNKNOWN INDICATION
     Route: 065
     Dates: start: 20120625
  2. QUETIAPINE. [Suspect]
     Active Substance: QUETIAPINE
     Indication: AGGRESSION
     Route: 065
  3. MORPHINE [Suspect]
     Active Substance: MORPHINE
     Indication: PRODUCT USED FOR UNKNOWN INDICATION
     Route: 065
     Dates: start: 20120625
  4. TROPATEPINE [Suspect]
     Active Substance: TROPATEPINE
     Indication: AGGRESSION
     Route: 065
     Dates: start: 20120605
  5. DIAZEPAM. [Suspect]
     Active Substance: DIAZEPAM
     Indication: PRODUCT USED FOR UNKNOWN INDICATION
     Route: 065
     Dates: start: 20120614
  6. QUETIAPINE. [Suspect]
     Active Substance: QUETIAPINE
     Indication: AGITATION
     Route: 065
  7. TROPATEPINE [Suspect]
     Active Substance: TROPATEPINE
     Indication: AGITATION
     Route: 065
     Dates: start: 20120605
  8. LOXAPINE. [Suspect]
     Active Substance: LOXAPINE
     Indication: PRODUCT USED FOR UNKNOWN INDICATION
     Route: 065
     Dates: start: 20120625
  9. RISPERIDONE. [Suspect]
     Active Substance: RISPERIDONE
     Indication: BIPOLAR DISORDER
  10. TROPATEPINE [Suspect]
     Active Substance: TROPATEPINE
     Indication: AGGRESSION
     Route: 065
  11. TROPATEPINE [Suspect]
     Active Substance: TROPATEPINE
     Indication: AGITATION
     Route: 065
  12. QUETIAPINE. [Suspect]
     Active Substance: QUETIAPINE
     Indication: AGITATION
     Route: 065
     Dates: start: 20120605
  13. LOXAPINE. [Suspect]
     Active Substance: LOXAPINE
     Indication: PRODUCT USED FOR UNKNOWN INDICATION
     Route: 048
     Dates: start: 20120614
  14. QUETIAPINE. [Suspect]
     Active Substance: QUETIAPINE
     Indication: AGGRESSION
     Route: 065
     Dates: start: 20120605
  15. VALPROIC ACID. [Suspect]
     Active Substance: VALPROIC ACID
     Indication: PRODUCT USED FOR UNKNOWN INDICATION
     Route: 065
     Dates: start: 20120614

REACTIONS (9)
  - Multiple organ dysfunction syndrome [Fatal]
  - Condition aggravated [Fatal]
  - Necrotising colitis [Fatal]
  - Cardiac arrest [Fatal]
  - Renal failure [Fatal]
  - Intestinal ischaemia [Fatal]
  - Mesenteric vascular occlusion [Fatal]
  - Fungal infection [Fatal]
  - Bacterial infection [Fatal]
